FAERS Safety Report 6832747-1 (Version None)
Quarter: 2010Q3

REPORT INFORMATION
  Report Type: 
  Country: None (occurrence: None)
  Receive Date: 20100712
  Receipt Date: 20100615
  Transmission Date: 20110219
  Serious: No
  Sender: FDA-Public Use
  Company Number: US-BAYER-201026541NA

PATIENT
  Age: 50 Year
  Sex: Female

DRUGS (1)
  1. EOVIST [Suspect]
     Indication: PRODUCT USED FOR UNKNOWN INDICATION
     Dosage: AS USED: 7 ML
     Dates: start: 20100608, end: 20100608

REACTIONS (1)
  - DYSPNOEA [None]
